FAERS Safety Report 8383981 (Version 2)
Quarter: 2013Q2

REPORT INFORMATION
  Report Type: Spontaneous
  Country: US (occurrence: US)
  Receive Date: 20120201
  Receipt Date: 20130401
  Transmission Date: 20140414
  Serious: Yes (Other)
  Sender: FDA-Public Use
  Company Number: US-ASTRAZENECA-2012SE05591

PATIENT
  Age: 918 Month
  Sex: Female
  Weight: 45.4 kg

DRUGS (4)
  1. TOPROL XL [Suspect]
     Indication: BUNDLE BRANCH BLOCK LEFT
     Route: 048
  2. TOPROL XL [Suspect]
     Indication: BUNDLE BRANCH BLOCK LEFT
     Dosage: GENERIC, 12.5 MG TWO TIMES A DAY
     Route: 048
     Dates: start: 20120201, end: 201302
  3. TOPROL XL [Suspect]
     Indication: BUNDLE BRANCH BLOCK LEFT
     Dosage: GENERIC, 25 MG TWO TIMES A DAY
     Route: 048
     Dates: start: 201302
  4. METFORMIN [Suspect]
     Route: 065

REACTIONS (8)
  - Upper limb fracture [Unknown]
  - Adverse event [Unknown]
  - Diabetes mellitus [Unknown]
  - Pruritus [Unknown]
  - Malaise [Unknown]
  - Paraesthesia [Not Recovered/Not Resolved]
  - Rhinorrhoea [Not Recovered/Not Resolved]
  - Somnolence [Not Recovered/Not Resolved]
